FAERS Safety Report 9490650 (Version 1)
Quarter: 2013Q3

REPORT INFORMATION
  Report Type: Spontaneous
  Country: US (occurrence: None)
  Receive Date: 20130828
  Receipt Date: 20130828
  Transmission Date: 20140515
  Serious: Yes (Life-Threatening)
  Sender: FDA-Public Use
  Company Number: None

PATIENT
  Age: 58 Year
  Sex: Male
  Weight: 60 kg

DRUGS (11)
  1. PROTAMINE SULFATE [Suspect]
     Indication: HEPARIN NEUTRALISATION THERAPY
     Dosage: PROTAMINE 250MG  ONCE  IV SLOW PUSH
     Route: 042
     Dates: start: 20130813
  2. VANCOMYCIN [Concomitant]
  3. VERSED [Concomitant]
  4. FENTANYL [Concomitant]
  5. ZEMURON [Concomitant]
  6. ETOMIDATE [Concomitant]
  7. AMICAR [Concomitant]
  8. AZITHROMYCIN [Concomitant]
  9. HEPARIN [Concomitant]
  10. CALCIUM CL [Concomitant]
  11. MAGNESIUM SULFATE [Concomitant]

REACTIONS (2)
  - Pulmonary arterial pressure increased [None]
  - Hypertension [None]
